FAERS Safety Report 4372260-7 (Version None)
Quarter: 2004Q2

REPORT INFORMATION
  Report Type: 
  Country: None (occurrence: None)
  Receive Date: 20040601
  Receipt Date: 20040517
  Transmission Date: 20050107
  Serious: Yes (Death)
  Sender: FDA-Public Use
  Company Number: US-JNJFOC-20040403360

PATIENT
  Age: 43 Year
  Sex: Male
  Weight: 80.7403 kg

DRUGS (4)
  1. DURAGESIC [Suspect]
     Indication: PAIN
     Dosage: 75 UG/HR, 1 IN 72 HOUR, TRANSDERMAL : 450 UG/HR, TRANSDERMAL
     Route: 062
     Dates: start: 20040107, end: 20040109
  2. DURAGESIC [Suspect]
     Indication: PAIN
     Dosage: 75 UG/HR, 1 IN 72 HOUR, TRANSDERMAL : 450 UG/HR, TRANSDERMAL
     Route: 062
     Dates: start: 20040109, end: 20040109
  3. PROMETHAZINE [Concomitant]
  4. SERTRALINE HCL [Concomitant]

REACTIONS (24)
  - ACCIDENTAL OVERDOSE [None]
  - ARTERIOSCLEROSIS [None]
  - CARDIOMEGALY [None]
  - CEREBRAL HAEMORRHAGE [None]
  - CIRCULATORY COLLAPSE [None]
  - COMA [None]
  - CONTUSION [None]
  - CORONARY ARTERY ATHEROSCLEROSIS [None]
  - DRUG SCREEN POSITIVE [None]
  - DRUG TOXICITY [None]
  - EMPHYSEMA [None]
  - EOSINOPHILIA [None]
  - EPISTAXIS [None]
  - EXCORIATION [None]
  - HEPATIC STEATOSIS [None]
  - HYPERTENSION [None]
  - HYPERTROPHIC CARDIOMYOPATHY [None]
  - INJURY [None]
  - LUNG CREPITATION [None]
  - MEDICATION ERROR [None]
  - MOUTH HAEMORRHAGE [None]
  - PULMONARY HAEMORRHAGE [None]
  - PULMONARY OEDEMA [None]
  - SELF-MEDICATION [None]
